FAERS Safety Report 4290476-5 (Version None)
Quarter: 2004Q1

REPORT INFORMATION
  Report Type: 
  Country: None (occurrence: None)
  Receive Date: 20040126
  Receipt Date: 20030924
  Transmission Date: 20041129
  Serious: No
  Sender: FDA-Public Use
  Company Number: USA030638812

PATIENT
  Age: 59 Year
  Sex: Female
  Weight: 70 kg

DRUGS (16)
  1. FORTEO [Suspect]
     Indication: OSTEOPOROSIS
     Dosage: 20 UG/DAY
     Dates: start: 20030501
  2. VITAMIN D [Concomitant]
  3. CALCIUM [Concomitant]
  4. MIACALCIN [Concomitant]
  5. ZOLOFT [Concomitant]
  6. ASPIRIN [Concomitant]
  7. PREMARIN [Concomitant]
  8. PREMARIN H-C VAGINAL CREAM [Concomitant]
  9. DEPAKOTE [Concomitant]
  10. ULTRAM [Concomitant]
  11. ACCUPRIL [Concomitant]
  12. LIPITOR [Concomitant]
  13. CARBAMAZEPINE [Concomitant]
  14. VITAMIN E [Concomitant]
  15. VITAMIN C [Concomitant]
  16. CALCIUM WITH VITAMIN D [Concomitant]

REACTIONS (3)
  - HEADACHE [None]
  - INJECTION SITE ERYTHEMA [None]
  - INJECTION SITE HAEMORRHAGE [None]
